FAERS Safety Report 5055776-X (Version None)
Quarter: 2006Q3

REPORT INFORMATION
  Report Type: 
  Country: None (occurrence: None)
  Receive Date: 20060714
  Receipt Date: 20060216
  Transmission Date: 20061208
  Serious: No
  Sender: FDA-Public Use
  Company Number: 35692

PATIENT
  Sex: 0

DRUGS (2)
  1. BSS [Suspect]
     Indication: SURGERY
  2. DISCOVISC [Suspect]
     Indication: SURGERY

REACTIONS (3)
  - INFLAMMATION [None]
  - POSTOPERATIVE INFECTION [None]
  - STAPHYLOCOCCAL INFECTION [None]
